FAERS Safety Report 9931678 (Version 1)
Quarter: 2014Q1

REPORT INFORMATION
  Report Type: Spontaneous
  Country: US (occurrence: None)
  Receive Date: 20140224
  Receipt Date: 20140224
  Transmission Date: 20141002
  Serious: Yes (Death)
  Sender: FDA-Public Use
  Company Number: NL01PV14.35257

PATIENT
  Age: 42 Year
  Sex: Female

DRUGS (6)
  1. UNKNOWN (ZOLPIDEM) TABLET [Suspect]
  2. INSULIN (INSULIN) [Suspect]
  3. BETA BLOCKING AGENTS [Suspect]
  4. NEBIVOLOL (NEBIVOLOL) (NEBIVOLOL) [Suspect]
  5. TRIAZOLAM (TRIAZOLAM) [Suspect]
  6. PREGABALIN (PREGABALIN) [Suspect]

REACTIONS (4)
  - Completed suicide [None]
  - Respiratory arrest [None]
  - Cardiac arrest [None]
  - Exposure via ingestion [None]
